FAERS Safety Report 5041926-8 (Version None)
Quarter: 2006Q2

REPORT INFORMATION
  Report Type: 
  Country: None (occurrence: None)
  Receive Date: 20060630
  Receipt Date: 20060616
  Transmission Date: 20061013
  Serious: Yes (Hospitalization)
  Sender: FDA-Public Use
  Company Number: CA-2005-010208

PATIENT
  Age: 27 Year
  Sex: Female

DRUGS (1)
  1. BETASERON [Suspect]
     Indication: RELAPSING-REMITTING MULTIPLE SCLEROSIS
     Dosage: 8 MIU, EVERY 2D, SUBUCTANEOUS
     Route: 058
     Dates: start: 20040130, end: 20050324

REACTIONS (6)
  - HEPATIC ENZYME INCREASED [None]
  - HEPATIC LESION [None]
  - INJECTION SITE ERYTHEMA [None]
  - INJECTION SITE INFLAMMATION [None]
  - INJECTION SITE MASS [None]
  - JAUNDICE [None]
